FAERS Safety Report 17193819 (Version 1)
Quarter: 2019Q4

REPORT INFORMATION
  Report Type: Spontaneous
  Country: US (occurrence: US)
  Receive Date: 20191223
  Receipt Date: 20191223
  Transmission Date: 20200122
  Serious: No
  Sender: FDA-Public Use
  Company Number: US-LUNDBECK-DKLU3008194

PATIENT
  Sex: Male

DRUGS (5)
  1. NORTHERA [Interacting]
     Active Substance: DROXIDOPA
     Indication: PSYCHIATRIC SYMPTOM
  2. NUPLAZID [Concomitant]
     Active Substance: PIMAVANSERIN TARTRATE
     Indication: PRODUCT USED FOR UNKNOWN INDICATION
     Route: 065
  3. NORTHERA [Suspect]
     Active Substance: DROXIDOPA
     Indication: PARKINSON^S DISEASE
     Dosage: OVERDOSE: 2700 MG
     Route: 048
  4. LEVODOPA [Interacting]
     Active Substance: LEVODOPA
     Indication: PRODUCT USED FOR UNKNOWN INDICATION
     Route: 065
  5. NORTHERA [Interacting]
     Active Substance: DROXIDOPA
     Indication: HALLUCINATION

REACTIONS (3)
  - Drug interaction [Unknown]
  - Agitation [Unknown]
  - Prescribed overdose [Unknown]
